FAERS Safety Report 7039463-4 (Version None)
Quarter: 2010Q4

REPORT INFORMATION
  Report Type: 
  Country: None (occurrence: None)
  Receive Date: 20101012
  Receipt Date: 20101008
  Transmission Date: 20110411
  Serious: Yes (Hospitalization)
  Sender: FDA-Public Use
  Company Number: BR-ROCHE-731930

PATIENT
  Age: 30 Year
  Sex: Female
  Weight: 60 kg

DRUGS (2)
  1. RIVOTRIL [Suspect]
     Dosage: DOSE: 2.5 MG/ML; FREQUENCY: 30 DROPS
     Route: 048
     Dates: start: 20100922
  2. VENLAFAXINE HCL [Concomitant]

REACTIONS (2)
  - CEREBRAL ISCHAEMIA [None]
  - OVERDOSE [None]
